FAERS Safety Report 8160532-X (Version None)
Quarter: 2012Q1

REPORT INFORMATION
  Report Type: 
  Country: None (occurrence: None)
  Receive Date: 20120223
  Receipt Date: 20120215
  Transmission Date: 20120608
  Serious: Yes (Hospitalization)
  Sender: FDA-Public Use
  Company Number: US-CELGENEUS-163-21880-12021843

PATIENT
  Sex: Male

DRUGS (17)
  1. ANTARA (MICRONIZED) [Concomitant]
     Route: 065
  2. HYDROCODONE BITARTRATE AND ACETAMINOPHEN [Concomitant]
     Route: 065
  3. QUINAPRIL [Concomitant]
     Route: 065
  4. TAMSULOSIN HCL [Concomitant]
     Route: 065
  5. TIMOLOL MALEATE [Concomitant]
     Route: 065
  6. ZOMETA [Concomitant]
     Route: 065
  7. CRESTOR [Concomitant]
     Route: 065
  8. REVLIMID [Suspect]
     Indication: MULTIPLE MYELOMA
     Dosage: 25 MILLIGRAM
     Route: 048
     Dates: start: 20120124
  9. GLYCOLAX [Concomitant]
     Route: 065
  10. NIASPAN [Concomitant]
     Route: 065
  11. DEXAMETHASONE [Concomitant]
     Route: 065
  12. GLYBURIDE [Concomitant]
     Route: 065
  13. NAPROXEN [Concomitant]
     Route: 065
  14. BONIVA [Concomitant]
     Route: 065
  15. FERREX [Concomitant]
     Route: 065
  16. GABAPENTIN [Concomitant]
     Route: 065
  17. LEVOTHYROXINE SODIUM [Concomitant]
     Route: 065

REACTIONS (2)
  - FULL BLOOD COUNT DECREASED [None]
  - RENAL DISORDER [None]
